FAERS Safety Report 23116621 (Version 1)
Quarter: 2023Q4

REPORT INFORMATION
  Report Type: Spontaneous
  Country: SE (occurrence: SE)
  Receive Date: 20231027
  Receipt Date: 20231027
  Transmission Date: 20240110
  Serious: Yes (Other)
  Sender: FDA-Public Use
  Company Number: SE-ABBVIE-5466079

PATIENT
  Age: 55 Year
  Sex: Male

DRUGS (9)
  1. DALBAVANCIN HYDROCHLORIDE [Suspect]
     Active Substance: DALBAVANCIN HYDROCHLORIDE
     Indication: Device related infection
     Dosage: 3 WEEKLY DOSES OF 500 MG AT A CUMULATIVE DOSE OF 2500 MG
     Route: 042
  2. DALBAVANCIN HYDROCHLORIDE [Suspect]
     Active Substance: DALBAVANCIN HYDROCHLORIDE
     Indication: Device related infection
     Dosage: INITIAL DOSE FOLLOWED BY 3 WEEKLY DOSES OF 500 MG AT A CUMULATIVE DOSE OF 2500 MG
     Route: 042
  3. AMLODIPINE [Concomitant]
     Active Substance: AMLODIPINE BESYLATE
     Indication: Device related infection
  4. BROMOCRIPTINE [Concomitant]
     Active Substance: BROMOCRIPTINE
     Indication: Device related infection
  5. TESTOSTERONE [Concomitant]
     Active Substance: TESTOSTERONE
     Indication: Device related infection
  6. OXYCODONE [Concomitant]
     Active Substance: OXYCODONE
     Indication: Device related infection
  7. ENALAPRIL [Concomitant]
     Active Substance: ENALAPRIL
     Indication: Hypertension
  8. AMOXICILLIN [Concomitant]
     Active Substance: AMOXICILLIN
     Indication: Device related infection
     Dosage: TIME INTERVAL: 0.33333333 DAYS
     Route: 048
  9. AMOXICILLIN [Concomitant]
     Active Substance: AMOXICILLIN
     Indication: Device related infection

REACTIONS (2)
  - Ototoxicity [Unknown]
  - Off label use [Unknown]
